FAERS Safety Report 9113606 (Version 1)
Quarter: 2013Q1

REPORT INFORMATION
  Report Type: Report from Study
  Country: BE (occurrence: BE)
  Receive Date: 20130208
  Receipt Date: 20130208
  Transmission Date: 20140127
  Serious: Yes (Other)
  Sender: FDA-Public Use
  Company Number: BE-ROCHE-1188530

PATIENT
  Age: 58 Year
  Sex: Female
  Weight: 70 kg

DRUGS (14)
  1. TRASTUZUMAB [Suspect]
     Indication: BREAST CANCER METASTATIC
     Route: 065
     Dates: start: 200906, end: 201006
  2. TRASTUZUMAB [Suspect]
     Route: 065
     Dates: start: 201109, end: 201201
  3. TRASTUZUMAB [Suspect]
     Route: 065
     Dates: start: 201201, end: 201205
  4. TRASTUZUMAB [Suspect]
     Route: 065
     Dates: start: 201205
  5. TRASTUZUMAB [Suspect]
     Route: 065
     Dates: start: 201207, end: 201211
  6. CAPECITABINE [Suspect]
     Indication: BREAST CANCER METASTATIC
     Route: 065
     Dates: start: 201102, end: 201109
  7. NAVELBINE [Suspect]
     Indication: BREAST CANCER METASTATIC
     Route: 065
     Dates: start: 201109, end: 201201
  8. FEMARA [Suspect]
     Indication: BREAST CANCER METASTATIC
     Route: 065
     Dates: start: 200906, end: 201008
  9. AROMASIN [Suspect]
     Indication: BREAST CANCER METASTATIC
     Route: 065
     Dates: start: 201008
  10. LAPATINIB [Suspect]
     Indication: BREAST CANCER METASTATIC
     Route: 065
     Dates: start: 201102, end: 201109
  11. TAXOL [Suspect]
     Indication: BREAST CANCER METASTATIC
     Route: 065
     Dates: start: 201201, end: 201205
  12. GEMZAR [Suspect]
     Indication: BREAST CANCER METASTATIC
     Route: 065
     Dates: start: 201201, end: 201205
  13. MYOCET [Suspect]
     Indication: BREAST CANCER METASTATIC
     Route: 065
     Dates: start: 201207, end: 201211
  14. CYCLOPHOSPHAMIDE [Suspect]
     Indication: BREAST CANCER METASTATIC
     Route: 065
     Dates: start: 201207, end: 201211

REACTIONS (1)
  - Disease progression [Not Recovered/Not Resolved]
